FAERS Safety Report 20292415 (Version 1)
Quarter: 2022Q1

REPORT INFORMATION
  Report Type: Spontaneous
  Country: PK (occurrence: PK)
  Receive Date: 20220104
  Receipt Date: 20220104
  Transmission Date: 20220423
  Serious: Yes (Other)
  Sender: FDA-Public Use
  Company Number: PK-Fresenius Kabi-FK202200076

PATIENT
  Age: 20 Year
  Sex: Female
  Weight: 45 kg

DRUGS (8)
  1. DEXMEDETOMIDINE [Suspect]
     Active Substance: DEXMEDETOMIDINE
     Indication: Postoperative analgesia
     Route: 050
  2. BUPIVACAINE [Concomitant]
     Active Substance: BUPIVACAINE
     Indication: Postoperative analgesia
     Route: 050
  3. ISOFLURANE [Concomitant]
     Active Substance: ISOFLURANE
     Indication: Product used for unknown indication
     Route: 065
  4. NALBUPHINE [Concomitant]
     Active Substance: NALBUPHINE
     Indication: Product used for unknown indication
     Route: 065
  5. GLUCOSE/LIDOCAINE HYDROCHLORIDE [Concomitant]
     Indication: Product used for unknown indication
     Route: 042
  6. KETAMINE [Concomitant]
     Active Substance: KETAMINE
     Indication: Product used for unknown indication
     Route: 065
  7. PROPOFOL [Concomitant]
     Active Substance: PROPOFOL
     Indication: Product used for unknown indication
     Route: 065
  8. ATRACURIUM [Concomitant]
     Active Substance: ATRACURIUM
     Indication: Product used for unknown indication
     Route: 065

REACTIONS (4)
  - Miosis [Recovered/Resolved]
  - Delayed recovery from anaesthesia [Recovered/Resolved]
  - Hypotension [Recovered/Resolved]
  - Bradycardia [Recovered/Resolved]
